FAERS Safety Report 9589340 (Version 1)
Quarter: 2013Q4

REPORT INFORMATION
  Report Type: Spontaneous
  Country: US (occurrence: US)
  Receive Date: 20131003
  Receipt Date: 20131003
  Transmission Date: 20140711
  Serious: No
  Sender: FDA-Public Use
  Company Number: US-AMGEN-USASP2012069788

PATIENT
  Age: 49 Year
  Sex: Female

DRUGS (9)
  1. ENBREL [Suspect]
     Indication: PSORIATIC ARTHROPATHY
     Dosage: 50 MG, QWK
     Route: 058
  2. DICLOFENAC [Concomitant]
     Dosage: 100 MG, UNK
  3. PREDNISONE [Concomitant]
     Dosage: 5 MG, UNK
  4. LEVOTHYROXINE [Concomitant]
     Dosage: 100 MCG
  5. METHOTREXATE [Concomitant]
     Dosage: 2.5 MG, UNK
  6. HYDROCODONE [Concomitant]
     Dosage: UNK
  7. VITAMIN D                          /00107901/ [Concomitant]
     Dosage: 1000 UNIT, UNK
  8. COQ [Concomitant]
     Dosage: 100 MG, UNK
  9. DETROL LA [Concomitant]
     Dosage: 4 MG, UNK

REACTIONS (3)
  - Arthralgia [Unknown]
  - Joint swelling [Unknown]
  - Psoriasis [Unknown]
